FAERS Safety Report 11431660 (Version 3)
Quarter: 2015Q3

REPORT INFORMATION
  Report Type: Spontaneous
  Country: US (occurrence: US)
  Receive Date: 20150828
  Receipt Date: 20150930
  Transmission Date: 20151125
  Serious: No
  Sender: FDA-Public Use
  Company Number: US-PFIZER INC-2015269498

PATIENT
  Age: 64 Year
  Sex: Female
  Weight: 62 kg

DRUGS (1)
  1. FLECTOR [Suspect]
     Active Substance: DICLOFENAC EPOLAMINE
     Indication: FIBROMYALGIA
     Dosage: UNK
     Dates: start: 20150725

REACTIONS (2)
  - Drug ineffective for unapproved indication [Unknown]
  - Body height decreased [Unknown]
